FAERS Safety Report 13690265 (Version 2)
Quarter: 2017Q3

REPORT INFORMATION
  Report Type: Report from Study
  Country: US (occurrence: US)
  Receive Date: 20170626
  Receipt Date: 20170710
  Transmission Date: 20171127
  Serious: Yes (Hospitalization)
  Sender: FDA-Public Use
  Company Number: US-PFIZER INC-2017271085

PATIENT
  Age: 90 Year
  Sex: Male
  Weight: 87 kg

DRUGS (4)
  1. ALDACTAZIDE [Suspect]
     Active Substance: HYDROCHLOROTHIAZIDE\SPIRONOLACTONE
     Indication: CARDIAC FAILURE CONGESTIVE
     Dosage: 1 DF, 1X/DAY (AS NEEDED)
     Route: 048
     Dates: start: 20150531, end: 20150608
  2. TORSEMIDE. [Concomitant]
     Active Substance: TORSEMIDE
     Dosage: UNK
     Dates: start: 20150531, end: 20150608
  3. AMIODARONE [Concomitant]
     Active Substance: AMIODARONE
     Dosage: UNK
     Dates: start: 201412
  4. TOPREC [Concomitant]
     Active Substance: KETOPROFEN
     Dosage: UNK
     Dates: start: 2014

REACTIONS (2)
  - Osteomyelitis [Recovered/Resolved]
  - Hyperkalaemia [Recovered/Resolved]

NARRATIVE: CASE EVENT DATE: 20150608
